FAERS Safety Report 7338566-4 (Version None)
Quarter: 2011Q1

REPORT INFORMATION
  Report Type: 
  Country: None (occurrence: None)
  Receive Date: 20110210
  Receipt Date: 20101102
  Transmission Date: 20110831
  Serious: No
  Sender: FDA-Public Use
  Company Number: 1000017137

PATIENT
  Sex: Female

DRUGS (4)
  1. SAVELLA [Suspect]
     Dosage: SEE IMAGE
     Route: 048
     Dates: start: 20101028, end: 20101031
  2. SAVELLA [Suspect]
     Dosage: SEE IMAGE
     Route: 048
     Dates: start: 20101025, end: 20101025
  3. SAVELLA [Suspect]
     Dosage: SEE IMAGE
     Route: 048
     Dates: start: 20101101
  4. SAVELLA [Suspect]
     Dosage: SEE IMAGE
     Route: 048
     Dates: start: 20101026, end: 20101027

REACTIONS (1)
  - HEADACHE [None]
